FAERS Safety Report 6182340-1 (Version None)
Quarter: 2009Q2

REPORT INFORMATION
  Report Type: 
  Country: None (occurrence: None)
  Receive Date: 20090505
  Receipt Date: 20090505
  Transmission Date: 20091009
  Serious: Yes (Other)
  Sender: FDA-Public Use
  Company Number: None

PATIENT
  Age: 33 Year
  Sex: Female
  Weight: 68.0396 kg

DRUGS (1)
  1. TOPAMAX [Suspect]
     Indication: MIGRAINE
     Dosage: 2 TABLETS 2 TIMES DAILY PO
     Route: 048
     Dates: start: 20080813, end: 20081206

REACTIONS (2)
  - ALOPECIA [None]
  - PRODUCT LABEL ISSUE [None]
